FAERS Safety Report 9282696 (Version 3)
Quarter: 2014Q1

REPORT INFORMATION
  Report Type: Report from Study
  Country: CA (occurrence: CA)
  Receive Date: 20130510
  Receipt Date: 20140217
  Transmission Date: 20141002
  Serious: Yes (Other)
  Sender: FDA-Public Use
  Company Number: CA-ROCHE-1137497

PATIENT
  Age: 44 Year
  Sex: Female
  Weight: 127.12 kg

DRUGS (7)
  1. RITUXAN [Suspect]
     Indication: RHEUMATOID ARTHRITIS
     Route: 042
     Dates: start: 20120727
  2. AZATHIOPRINE [Concomitant]
  3. PREDNISONE [Concomitant]
  4. METFORMIN [Concomitant]
  5. RABEPRAZOLE [Concomitant]
  6. TYLENOL [Concomitant]
     Route: 048
     Dates: start: 20120727, end: 20120727
  7. SOLU-MEDROL [Concomitant]
     Route: 042
     Dates: start: 20120727, end: 20120727

REACTIONS (7)
  - Hypertension [Not Recovered/Not Resolved]
  - Blood glucose increased [Not Recovered/Not Resolved]
  - Weight increased [Not Recovered/Not Resolved]
  - Infusion related reaction [Recovered/Resolved]
  - Pharyngeal oedema [Recovered/Resolved]
  - Ear pruritus [Recovered/Resolved]
  - Infusion related reaction [Recovered/Resolved]
